FAERS Safety Report 17337260 (Version 1)
Quarter: 2020Q1

REPORT INFORMATION
  Report Type: Spontaneous
  Country: CA (occurrence: CA)
  Receive Date: 20200129
  Receipt Date: 20200129
  Transmission Date: 20200409
  Serious: Yes (Disabling, Other)
  Sender: FDA-Public Use
  Company Number: CA-AUROBINDO-AUR-APL-2020-004144

PATIENT
  Age: 54 Year
  Sex: Male

DRUGS (5)
  1. SANDOSTATIN [Suspect]
     Active Substance: OCTREOTIDE ACETATE
     Indication: PANCREATIC NEUROENDOCRINE TUMOUR
     Dosage: 40 MILLIGRAM,1 EVERY 1 MONTH
     Route: 030
  2. ATACAND [Concomitant]
     Active Substance: CANDESARTAN CILEXETIL
     Indication: BLOOD PRESSURE ABNORMAL
     Dosage: UNK
     Route: 065
  3. METFORMIN [Suspect]
     Active Substance: METFORMIN HYDROCHLORIDE
     Indication: BLOOD GLUCOSE INCREASED
     Dosage: UNK
     Route: 065
  4. SANDOSTATIN [Suspect]
     Active Substance: OCTREOTIDE ACETATE
     Dosage: 60 MILLIGRAM, 1 EVERY 1 MONTH
     Route: 030
  5. SANDOSTATIN [Suspect]
     Active Substance: OCTREOTIDE ACETATE
     Dosage: 30 MILLIGRAM,1 EVERY 1 MONTH
     Route: 030

REACTIONS (11)
  - Defaecation urgency [Unknown]
  - Paraesthesia [Unknown]
  - Diarrhoea [Unknown]
  - Muscle spasms [Unknown]
  - Blood pressure decreased [Unknown]
  - Blood pressure systolic increased [Unknown]
  - Blood glucose increased [Unknown]
  - Blood pressure increased [Unknown]
  - Pilonidal cyst [Unknown]
  - Rectal abscess [Unknown]
  - Ocular discomfort [Unknown]
